FAERS Safety Report 9371518 (Version 4)
Quarter: 2013Q4

REPORT INFORMATION
  Report Type: Spontaneous
  Country: CH (occurrence: CH)
  Receive Date: 20130627
  Receipt Date: 20131014
  Transmission Date: 20140711
  Serious: Yes (Hospitalization, Other)
  Sender: FDA-Public Use
  Company Number: CH-JNJFOC-20130613650

PATIENT
  Age: 56 Year
  Sex: Female

DRUGS (1)
  1. REMICADE [Suspect]
     Indication: RHEUMATOID ARTHRITIS
     Dosage: STARTED SINCE LONG TIME AGO
     Route: 042
     Dates: start: 20090815, end: 20130430

REACTIONS (3)
  - Hemiparesis [Recovered/Resolved]
  - Borrelia infection [Unknown]
  - Multiple sclerosis [Unknown]
